FAERS Safety Report 9828625 (Version 1)
Quarter: 2013Q4

REPORT INFORMATION
  Report Type: Spontaneous
  Country: US (occurrence: None)
  Receive Date: 20131120
  Receipt Date: 20131120
  Transmission Date: 20140711
  Serious: No
  Sender: FDA-Public Use
  Company Number: 1000047635

PATIENT
  Age: 64 Year
  Sex: Male

DRUGS (2)
  1. VIIBRYD (VILAZODONE HYDROCHLORIDE) (TABLETS) [Suspect]
     Indication: DEPRESSION
     Dosage: 10 MG (10 MG, 1 IN 1 D), ORAL
     Route: 048
     Dates: start: 201304, end: 2013
  2. ADDERALL (DEXTROAMPHETAMINE, AMPHETAMINE) (DEXTROAMPHETAMINE, AMPHETAMINE) [Concomitant]

REACTIONS (2)
  - Insomnia [None]
  - Apathy [None]
